FAERS Safety Report 25392083 (Version 2)
Quarter: 2025Q2

REPORT INFORMATION
  Report Type: Spontaneous
  Country: FR (occurrence: FR)
  Receive Date: 20250603
  Receipt Date: 20250611
  Transmission Date: 20250717
  Serious: Yes (Hospitalization)
  Sender: MYLAN
  Company Number: FR-002147023-NVSC2025FR081243

PATIENT
  Sex: Female

DRUGS (1)
  1. EVEROLIMUS [Suspect]
     Active Substance: EVEROLIMUS
     Indication: Neuroendocrine tumour of the lung

REACTIONS (3)
  - Cerebrovascular accident [Unknown]
  - Ischaemic stroke [Unknown]
  - Hypertension [Unknown]
